FAERS Safety Report 22278246 (Version 1)
Quarter: 2023Q2

REPORT INFORMATION
  Report Type: Spontaneous
  Country: FR (occurrence: FR)
  Receive Date: 20230503
  Receipt Date: 20230503
  Transmission Date: 20230722
  Serious: Yes (Hospitalization, Disabling, Other)
  Sender: FDA-Public Use
  Company Number: FR-BAYER-2022A012805

PATIENT
  Age: 27 Year
  Sex: Female

DRUGS (6)
  1. CIPROFLOXACIN [Suspect]
     Active Substance: CIPROFLOXACIN
     Indication: Ear infection staphylococcal
     Dosage: 500 MG, BID
     Route: 048
     Dates: start: 20211007, end: 20211014
  2. CIPROFLOXACIN [Suspect]
     Active Substance: CIPROFLOXACIN
     Indication: Acne
  3. MODERNA COVID-19 VACCINE [Concomitant]
     Active Substance: ELASOMERAN
     Indication: COVID-19 immunisation
     Dosage: 1 DF, ONCE
     Route: 030
     Dates: start: 202109
  4. MODERNA COVID-19 VACCINE [Concomitant]
     Active Substance: ELASOMERAN
     Indication: COVID-19 immunisation
     Dosage: 1 DF, ONCE
     Route: 030
     Dates: start: 202108, end: 202108
  5. PRISTINAMYCIN [Concomitant]
     Active Substance: PRISTINAMYCIN
     Indication: Ear infection staphylococcal
     Dosage: UNK
     Dates: start: 20210929, end: 20211007
  6. PRISTINAMYCIN [Concomitant]
     Active Substance: PRISTINAMYCIN
     Indication: Acne

REACTIONS (35)
  - Dermatitis allergic [Not Recovered/Not Resolved]
  - Rash macular [Not Recovered/Not Resolved]
  - Enterocolitis haemorrhagic [None]
  - Large intestinal haemorrhage [None]
  - General physical health deterioration [None]
  - Colitis ulcerative [None]
  - Gastric ulcer [None]
  - Diarrhoea [None]
  - Abdominal pain [None]
  - Vomiting [None]
  - Gastrointestinal pain [Not Recovered/Not Resolved]
  - Arthralgia [Not Recovered/Not Resolved]
  - Cognitive disorder [Recovering/Resolving]
  - Photophobia [None]
  - Tinnitus [Not Recovered/Not Resolved]
  - Hyperacusis [None]
  - Disorientation [Recovering/Resolving]
  - Confusional state [Recovering/Resolving]
  - Amnesia [Recovering/Resolving]
  - Fatigue [None]
  - Headache [Not Recovered/Not Resolved]
  - Eye pain [None]
  - Anxiety [Not Recovered/Not Resolved]
  - Panic attack [None]
  - Depression [Not Recovered/Not Resolved]
  - Paraesthesia [None]
  - Neuralgia [None]
  - Burning sensation [Not Recovered/Not Resolved]
  - Dizziness [None]
  - Breast mass [None]
  - Breast cyst [None]
  - Bone pain [Not Recovered/Not Resolved]
  - Sacral pain [Not Recovered/Not Resolved]
  - Dry eye [Not Recovered/Not Resolved]
  - Dermatitis contact [Not Recovered/Not Resolved]

NARRATIVE: CASE EVENT DATE: 20211001
